FAERS Safety Report 7384846-6 (Version None)
Quarter: 2011Q1

REPORT INFORMATION
  Report Type: 
  Country: None (occurrence: None)
  Receive Date: 20110330
  Receipt Date: 20110321
  Transmission Date: 20110831
  Serious: Yes (Other)
  Sender: FDA-Public Use
  Company Number: US-CEPHALON-2011000804

PATIENT
  Sex: Female

DRUGS (3)
  1. NUVIGIL [Suspect]
     Route: 048
     Dates: start: 20101001
  2. DEXAMPHETAMINE [Concomitant]
     Dates: start: 20100801, end: 20100901
  3. NUVIGIL [Suspect]
     Route: 048
     Dates: start: 20100501, end: 20100701

REACTIONS (5)
  - SKIN ULCER HAEMORRHAGE [None]
  - SKIN HAEMORRHAGE [None]
  - STEVENS-JOHNSON SYNDROME [None]
  - SKIN EXFOLIATION [None]
  - SKIN ULCER [None]
